FAERS Safety Report 10044345 (Version 1)
Quarter: 2014Q1

REPORT INFORMATION
  Report Type: Spontaneous
  Country: US (occurrence: None)
  Receive Date: 20140326
  Receipt Date: 20140326
  Transmission Date: 20141002
  Serious: Yes (Death, Life-Threatening)
  Sender: FDA-Public Use
  Company Number: SYM-2014-18826

PATIENT
  Sex: 0

DRUGS (1)
  1. EDECRIN [Suspect]
     Indication: PRODUCT USED FOR UNKNOWN INDICATION
     Dates: start: 20130323, end: 20130323

REACTIONS (3)
  - Vomiting [None]
  - Diarrhoea [None]
  - Confusional state [None]
